FAERS Safety Report 8901658 (Version 1)
Quarter: 2012Q4

REPORT INFORMATION
  Report Type: Spontaneous
  Country: US (occurrence: None)
  Receive Date: 20121108
  Receipt Date: 20121108
  Transmission Date: 20130627
  Serious: No
  Sender: FDA-Public Use
  Company Number: None

PATIENT
  Age: 65 Year
  Sex: Male
  Weight: 110.9 kg

DRUGS (1)
  1. AZATHIOPRINE [Suspect]
     Dates: start: 20110714, end: 20110906

REACTIONS (6)
  - Abdominal pain [None]
  - Diarrhoea [None]
  - Vomiting [None]
  - Weight decreased [None]
  - Thirst [None]
  - Alanine aminotransferase increased [None]
